FAERS Safety Report 18219142 (Version 1)
Quarter: 2020Q3

REPORT INFORMATION
  Report Type: Other
  Country: FR (occurrence: FR)
  Receive Date: 20200901
  Receipt Date: 20200901
  Transmission Date: 20201103
  Serious: Yes (Life-Threatening)
  Sender: FDA-Public Use
  Company Number: FR-INCYTE CORPORATION-2020IN008184

PATIENT

DRUGS (14)
  1. VERCYTE [Suspect]
     Active Substance: PIPOBROMAN
     Indication: POLYCYTHAEMIA VERA
     Dosage: UNK
     Route: 048
     Dates: start: 201307, end: 201605
  2. LEVOTHYROX [Suspect]
     Active Substance: LEVOTHYROXINE
     Indication: THYROID MASS
     Dosage: 1 DF, QD
     Route: 048
  3. SERESTA [Suspect]
     Active Substance: OXAZEPAM
     Indication: ANXIETY
     Dosage: INCONNUE
     Route: 048
  4. HYPERIUM [Suspect]
     Active Substance: RILMENIDINE PHOSPHATE
     Indication: HYPERTENSION
     Dosage: UNK, INCONNUE
     Route: 048
  5. EUPRESSYL [URAPIDIL] [Suspect]
     Active Substance: URAPIDIL
     Indication: HYPERTENSION
     Dosage: INCONNUE
     Route: 048
  6. PREVISCAN [FLUINDIONE] [Suspect]
     Active Substance: FLUINDIONE
     Indication: THROMBOSIS PROPHYLAXIS
     Dosage: SELON INR
     Route: 048
  7. JAKAVI [Suspect]
     Active Substance: RUXOLITINIB
     Indication: MYELOFIBROSIS
     Dosage: 2 DF, QD
     Route: 048
     Dates: start: 201607
  8. XAGRID [Suspect]
     Active Substance: ANAGRELIDE HYDROCHLORIDE
     Indication: POLYCYTHAEMIA VERA
     Dosage: UNK, INCONNUE
     Route: 048
     Dates: start: 201307, end: 201605
  9. PRAVASTATIN SODIUM. [Suspect]
     Active Substance: PRAVASTATIN SODIUM
     Indication: DYSLIPIDAEMIA
     Dosage: 10 MG, QD
     Route: 048
  10. RETACRIT [EPOETIN ZETA] [Suspect]
     Active Substance: ERYTHROPOIETIN
     Indication: ANAEMIA
     Dosage: 4000 IU, QW
     Route: 058
  11. LERCAN [Suspect]
     Active Substance: LERCANIDIPINE
     Indication: HYPERTENSION
     Dosage: 1 DF, QD
     Route: 048
  12. NEBIVOLOL. [Suspect]
     Active Substance: NEBIVOLOL
     Indication: HYPERTENSION
     Dosage: 5 MG, QD
     Route: 048
  13. MONOPROST [Suspect]
     Active Substance: LATANOPROST
     Indication: INTRAOCULAR PRESSURE TEST
     Dosage: UNK, INCONNUE IN SINGLE DOSE CONTAINER
     Route: 047
  14. HYDREA [Suspect]
     Active Substance: HYDROXYUREA
     Indication: POLYCYTHAEMIA VERA
     Dosage: INCONNUE
     Route: 048
     Dates: start: 200605, end: 201307

REACTIONS (1)
  - Adenocarcinoma metastatic [Not Recovered/Not Resolved]

NARRATIVE: CASE EVENT DATE: 202004
